FAERS Safety Report 10044360 (Version 2)
Quarter: 2014Q2

REPORT INFORMATION
  Report Type: Report from Study
  Country: US (occurrence: US)
  Receive Date: 20140328
  Receipt Date: 20140408
  Transmission Date: 20141212
  Serious: Yes (Hospitalization, Other)
  Sender: FDA-Public Use
  Company Number: US-ALEXION PHARMACEUTICALS INC.-A201002000

PATIENT
  Sex: 0

DRUGS (8)
  1. SOLIRIS [Suspect]
     Indication: PAROXYSMAL NOCTURNAL HAEMOGLOBINURIA
     Dosage: 900 MG, QW
     Route: 042
  2. SOLIRIS [Suspect]
     Indication: APLASTIC ANAEMIA
     Dosage: 900 MG, Q2W
     Route: 042
  3. BETIMOL                            /00371201/ [Concomitant]
     Indication: GLAUCOMA
     Dosage: UNK, BID
     Route: 031
  4. LUMIGAN [Concomitant]
     Indication: GLAUCOMA
     Dosage: UNK
     Route: 031
  5. LISINOPRIL [Concomitant]
     Indication: HYPERTENSION
     Dosage: 5 MG, QD
     Route: 048
  6. LIPITOR [Concomitant]
     Indication: HYPERLIPIDAEMIA
     Dosage: 10 MG, QD
     Route: 065
  7. MULTIVITAMIN                       /07504101/ [Concomitant]
     Indication: PRODUCT USED FOR UNKNOWN INDICATION
     Dosage: UNK
     Route: 065
  8. COMBIGAN [Concomitant]
     Indication: PRODUCT USED FOR UNKNOWN INDICATION
     Dosage: UNK
     Route: 047

REACTIONS (9)
  - Nephrolithiasis [Unknown]
  - Corynebacterium infection [Unknown]
  - Blood urine present [Unknown]
  - Pain [Unknown]
  - Rhinorrhoea [Unknown]
  - Back pain [Unknown]
  - Benign prostatic hyperplasia [Unknown]
  - Calculus bladder [Unknown]
  - Bursa removal [Unknown]
